FAERS Safety Report 4893145-3 (Version None)
Quarter: 2005Q4

REPORT INFORMATION
  Report Type: 
  Country: None (occurrence: None)
  Receive Date: 20051223
  Receipt Date: 20050930
  Transmission Date: 20060501
  Serious: Yes (Other)
  Sender: FDA-Public Use
  Company Number: PHEH2005US10945

PATIENT
  Sex: Male

DRUGS (3)
  1. CLOZARIL [Suspect]
     Indication: SCHIZOAFFECTIVE DISORDER
     Dosage: ORAL
     Route: 048
  2. DEPAKOTE [Suspect]
     Indication: CONVULSION
     Dosage: 250 MG, BID; 500 MG, BID  :  ORAL
     Route: 048
     Dates: end: 20050404
  3. DEPAKOTE [Suspect]
     Indication: CONVULSION
     Dosage: 250 MG, BID; 500 MG, BID  :  ORAL
     Route: 048
     Dates: start: 20050405

REACTIONS (3)
  - ALANINE AMINOTRANSFERASE INCREASED [None]
  - ASPARTATE AMINOTRANSFERASE INCREASED [None]
  - CONVULSION [None]
